FAERS Safety Report 5896864-5 (Version None)
Quarter: 2008Q3

REPORT INFORMATION
  Report Type: 
  Country: None (occurrence: None)
  Receive Date: 20080924
  Receipt Date: 20071030
  Transmission Date: 20090109
  Serious: No
  Sender: FDA-Public Use
  Company Number: US-BAYER-200714215BWH

PATIENT

DRUGS (1)
  1. AVELOX [Suspect]
     Indication: EAR INFECTION
     Route: 048

REACTIONS (3)
  - COLD SWEAT [None]
  - DIZZINESS [None]
  - HYPOTENSION [None]
